FAERS Safety Report 7226785-7 (Version None)
Quarter: 2011Q1

REPORT INFORMATION
  Report Type: 
  Country: None (occurrence: None)
  Receive Date: 20110111
  Receipt Date: 20110111
  Transmission Date: 20110831
  Serious: No
  Sender: FDA-Public Use
  Company Number: None

PATIENT

DRUGS (3)
  1. SIMCOR [Suspect]
  2. SIMVASTATIN [Suspect]
  3. LOTREL [Suspect]

REACTIONS (3)
  - DRUG INTERACTION [None]
  - MACULAR DEGENERATION [None]
  - GLYCOSYLATED HAEMOGLOBIN INCREASED [None]
